FAERS Safety Report 13125724 (Version 2)
Quarter: 2017Q1

REPORT INFORMATION
  Report Type: Spontaneous
  Country: JP (occurrence: JP)
  Receive Date: 20170118
  Receipt Date: 20170130
  Transmission Date: 20170428
  Serious: Yes (Death)
  Sender: FDA-Public Use
  Company Number: JP-CELGENEUS-JPN-2017012258

PATIENT
  Age: 70 Year
  Sex: Female

DRUGS (1)
  1. VIDAZA [Suspect]
     Active Substance: AZACITIDINE
     Indication: CHRONIC MYELOMONOCYTIC LEUKAEMIA
     Dosage: 100 MILLIGRAM
     Route: 058
     Dates: start: 201611, end: 20161208

REACTIONS (1)
  - Chronic myelomonocytic leukaemia [Fatal]

NARRATIVE: CASE EVENT DATE: 201612
